FAERS Safety Report 4805328-9 (Version None)
Quarter: 2005Q4

REPORT INFORMATION
  Report Type: 
  Country: None (occurrence: None)
  Receive Date: 20051017
  Receipt Date: 20051007
  Transmission Date: 20060501
  Serious: Yes (Death, Hospitalization)
  Sender: FDA-Public Use
  Company Number: 141824USA

PATIENT
  Age: 45 Year
  Sex: Female
  Weight: 63.5036 kg

DRUGS (10)
  1. PROPOFOL [Suspect]
     Indication: ANAESTHESIA
     Dosage: 40 MILLIGRAM
     Dates: start: 20040408
  2. PROPOFOL [Suspect]
     Indication: TOOTH EXTRACTION
     Dosage: 40 MILLIGRAM
     Dates: start: 20040408
  3. FENTANYL [Suspect]
     Dosage: 1 CUBIC CENT
     Dates: start: 20040408
  4. VERSED [Suspect]
     Dosage: 2.5 MILLIGRAM
     Dates: start: 20040408
  5. DECADRON [Suspect]
     Dosage: 4 MILLIGRAM
     Dates: start: 20040408
  6. ASPIRIN [Concomitant]
  7. NITROSTAT [Concomitant]
  8. PREMARIN [Concomitant]
  9. QUINIDINE HCL [Concomitant]
  10. ALBUTEROL [Concomitant]

REACTIONS (5)
  - ANAPHYLACTIC REACTION [None]
  - BRAIN DEATH [None]
  - CEREBRAL DISORDER [None]
  - CEREBRAL ISCHAEMIA [None]
  - SWOLLEN TONGUE [None]
